FAERS Safety Report 10636982 (Version 1)
Quarter: 2014Q4

REPORT INFORMATION
  Report Type: Spontaneous
  Country: GB (occurrence: None)
  Receive Date: 20141204
  Receipt Date: 20141204
  Transmission Date: 20150529
  Serious: Yes (Life-Threatening, Hospitalization)
  Sender: FDA-Public Use
  Company Number: FK201405709

PATIENT
  Age: 85 Year
  Sex: Female

DRUGS (1)
  1. METHOTREXATE (MANUFACTURER UNKNOWN) (METHOTREXATE) (METHOTREXATE) [Suspect]
     Active Substance: METHOTREXATE
     Indication: RHEUMATOID ARTHRITIS
     Route: 048
     Dates: end: 20140317

REACTIONS (7)
  - White blood cell count decreased [None]
  - Tongue ulceration [None]
  - Local swelling [None]
  - Neutropenia [None]
  - Respiratory tract ulceration [None]
  - Swollen tongue [None]
  - Platelet count decreased [None]

NARRATIVE: CASE EVENT DATE: 20140314
